FAERS Safety Report 10063346 (Version 4)
Quarter: 2015Q3

REPORT INFORMATION
  Report Type: Spontaneous
  Country: DE (occurrence: DE)
  Receive Date: 20140407
  Receipt Date: 20150909
  Transmission Date: 20151125
  Serious: Yes (Other)
  Sender: FDA-Public Use
  Company Number: DE-B.I. PHARMACEUTICALS,INC./RIDGEFIELD-2014-BI-15218BY

PATIENT
  Age: 63 Year
  Sex: Female

DRUGS (1)
  1. PRITOR PLUS [Suspect]
     Active Substance: TELMISARTAN
     Indication: PRODUCT USED FOR UNKNOWN INDICATION
     Dosage: DOSE PER APPLICATION  AND DAILY DOSE 1 DF, 80 MG/25 MG
     Route: 048
     Dates: start: 20140215, end: 20140218

REACTIONS (4)
  - Feeling abnormal [Unknown]
  - Blood pressure systolic increased [Unknown]
  - Dizziness [Unknown]
  - Drug ineffective [Unknown]

NARRATIVE: CASE EVENT DATE: 201402
